FAERS Safety Report 9647776 (Version 2)
Quarter: 2013Q4

REPORT INFORMATION
  Report Type: Spontaneous
  Country: US (occurrence: US)
  Receive Date: 20131028
  Receipt Date: 20131109
  Transmission Date: 20140711
  Serious: Yes (Hospitalization)
  Sender: FDA-Public Use
  Company Number: US-009507513-1310USA010353

PATIENT
  Age: 11 Year
  Sex: Female

DRUGS (1)
  1. NOXAFIL [Suspect]
     Indication: ZYGOMYCOSIS
     Dosage: 400 MG, FOUR TIMES DAILY
     Route: 048

REACTIONS (2)
  - Drug level decreased [Not Recovered/Not Resolved]
  - Incorrect dose administered [Unknown]
